FAERS Safety Report 8766747 (Version 6)
Quarter: 2014Q3

REPORT INFORMATION
  Report Type: Report from Study
  Country: HU (occurrence: HU)
  Receive Date: 20120904
  Receipt Date: 20140804
  Transmission Date: 20150326
  Serious: Yes (Hospitalization, Other)
  Sender: FDA-Public Use
  Company Number: HU-BRISTOL-MYERS SQUIBB COMPANY-16895088

PATIENT
  Age: 74 Year
  Sex: Female

DRUGS (10)
  1. METHYLPREDNISOLONE [Concomitant]
     Active Substance: METHYLPREDNISOLONE
  2. CHLOROPYRAMINE [Concomitant]
     Active Substance: CHLOROPYRAMINE
  3. CARVEDILOL. [Concomitant]
     Active Substance: CARVEDILOL
  4. IPILIMUMAB [Suspect]
     Active Substance: IPILIMUMAB
     Indication: METASTATIC MALIGNANT MELANOMA
     Dosage: 12-12JUL12, 04-04AUG12
     Route: 042
     Dates: start: 20120712, end: 20121004
  5. CALCIUM GLUCONATE. [Concomitant]
     Active Substance: CALCIUM GLUCONATE
  6. FAMOTIDINE. [Concomitant]
     Active Substance: FAMOTIDINE
  7. POTASSIUM CHLORIDE. [Concomitant]
     Active Substance: POTASSIUM CHLORIDE
  8. PERINDOPRIL [Concomitant]
     Active Substance: PERINDOPRIL
  9. DIMETINDENE [Concomitant]
     Dates: start: 20120804
  10. FERROUS SULFATE [Concomitant]
     Active Substance: FERROUS SULFATE\FERROUS SULFATE, DRIED

REACTIONS (2)
  - Adrenocorticotropic hormone deficiency [Recovered/Resolved]
  - Periorbital oedema [Recovered/Resolved]

NARRATIVE: CASE EVENT DATE: 20120819
